FAERS Safety Report 4976094-1 (Version None)
Quarter: 2006Q2

REPORT INFORMATION
  Report Type: 
  Country: None (occurrence: None)
  Receive Date: 20060411
  Receipt Date: 20060403
  Transmission Date: 20061013
  Serious: Yes (Other)
  Sender: FDA-Public Use
  Company Number: 2006047008

PATIENT
  Sex: Male

DRUGS (1)
  1. LYRICA [Suspect]
     Indication: PAIN
     Dates: end: 20060316

REACTIONS (3)
  - CARPAL TUNNEL SYNDROME [None]
  - DRY MOUTH [None]
  - PARAESTHESIA [None]
